FAERS Safety Report 17940240 (Version 2)
Quarter: 2020Q3

REPORT INFORMATION
  Report Type: Spontaneous
  Country: DE (occurrence: DE)
  Receive Date: 20200624
  Receipt Date: 20200928
  Transmission Date: 20201103
  Serious: Yes (Hospitalization)
  Sender: FDA-Public Use
  Company Number: DE-MYLANLABS-2020M1057556

PATIENT
  Age: 55 Year
  Sex: Male

DRUGS (8)
  1. VARGATEF [Suspect]
     Active Substance: NINTEDANIB
     Indication: PRODUCT USED FOR UNKNOWN INDICATION
     Dosage: UNK
  2. DOCETAXEL. [Suspect]
     Active Substance: DOCETAXEL
     Indication: PRODUCT USED FOR UNKNOWN INDICATION
     Dosage: 60 MILLIGRAM(60 MG, ZULETZT AM 03.01.2020)
     Route: 042
  3. METAMIZOL                          /06276701/ [Concomitant]
     Active Substance: METAMIZOLE
     Dosage: 500 MILLIGRAM, QID(500 MG, 1?1?1?1)
  4. PANTOPRAZOLE [Suspect]
     Active Substance: PANTOPRAZOLE
     Indication: PRODUCT USED FOR UNKNOWN INDICATION
     Dosage: 40 MILLIGRAM, QD(40 MILLIGRAM, QD, 40 MG, (1?0?0?0))
  5. FENTANYL. [Concomitant]
     Active Substance: FENTANYL
     Dosage: UNK, (UNK, QH(25 YG/H, PFLASTER TRANSDERMAL))
  6. MOXIFLOXACIN. [Concomitant]
     Active Substance: MOXIFLOXACIN
     Dosage: 400 MILLIGRAM, QD(400 MG, 0?0?0?1, SEIT 02.01.2020 F?R 7 TAGE)
     Dates: start: 20200102
  7. DEXAMETHASON                       /00016001/ [Suspect]
     Active Substance: DEXAMETHASONE
     Indication: PRODUCT USED FOR UNKNOWN INDICATION
     Dosage: 2 MILLIGRAM, BID(2 MG, (1?0?1?0))
  8. MOVICOL [Concomitant]
     Active Substance: POLYETHYLENE GLYCOL 3350\POTASSIUM CHLORIDE\SODIUM BICARBONATE\SODIUM CHLORIDE
     Dosage: UNK, QD, (1?0?0?0)

REACTIONS (2)
  - Fracture [Recovering/Resolving]
  - Musculoskeletal pain [Recovering/Resolving]
